FAERS Safety Report 16768371 (Version 8)
Quarter: 2020Q1

REPORT INFORMATION
  Report Type: Report from Study
  Country: CO (occurrence: CO)
  Receive Date: 20190903
  Receipt Date: 20200331
  Transmission Date: 20200409
  Serious: Yes (Disabling, Other)
  Sender: FDA-Public Use
  Company Number: CO-SA-2017SA269327

PATIENT
  Age: 50 Year
  Sex: Female

DRUGS (1)
  1. ALEMTUZUMAB [Suspect]
     Active Substance: ALEMTUZUMAB
     Indication: MULTIPLE SCLEROSIS
     Dosage: 12 MG,QD
     Route: 041
     Dates: start: 20170426, end: 20170428

REACTIONS (18)
  - Monocyte count increased [Recovered/Resolved]
  - pH urine increased [Recovered/Resolved]
  - Haematuria [Not Recovered/Not Resolved]
  - Urinary tract infection bacterial [Recovered/Resolved]
  - Red blood cells urine positive [Not Recovered/Not Resolved]
  - Eosinophil count increased [Not Recovered/Not Resolved]
  - Headache [Recovered/Resolved]
  - Bacteriuria [Recovered/Resolved]
  - Nitrite urine present [Recovered/Resolved]
  - Hypoaesthesia [Recovered/Resolved]
  - Urinary sediment present [Recovered/Resolved]
  - White blood cell count increased [Recovered/Resolved]
  - Leukocyturia [Not Recovered/Not Resolved]
  - Gait disturbance [Recovered/Resolved]
  - Loss of personal independence in daily activities [Recovered/Resolved]
  - Urine abnormality [Recovered/Resolved]
  - Dysstasia [Not Recovered/Not Resolved]
  - Lymphocyte count decreased [Recovered/Resolved]

NARRATIVE: CASE EVENT DATE: 20171226
